FAERS Safety Report 18927946 (Version 2)
Quarter: 2021Q1

REPORT INFORMATION
  Report Type: Report from Study
  Country: MX (occurrence: MX)
  Receive Date: 20210223
  Receipt Date: 20210311
  Transmission Date: 20210420
  Serious: Yes (Other)
  Sender: FDA-Public Use
  Company Number: NVSC2021MX040443

PATIENT
  Sex: Female
  Weight: 74 kg

DRUGS (6)
  1. GALVUS MET [Suspect]
     Active Substance: METFORMIN HYDROCHLORIDE\VILDAGLIPTIN
     Indication: DIABETES MELLITUS
     Dosage: 2 DF, BID, (50/1000 MG)
     Route: 048
     Dates: start: 2005, end: 2007
  2. GALVUS MET [Suspect]
     Active Substance: METFORMIN HYDROCHLORIDE\VILDAGLIPTIN
     Dosage: 2 DF, BID, (50/850 MG)
     Route: 048
     Dates: start: 2007
  3. GALVUS MET [Suspect]
     Active Substance: METFORMIN HYDROCHLORIDE\VILDAGLIPTIN
     Dosage: 2 DF, QD
     Route: 048
     Dates: start: 2015
  4. TASEDAN [Concomitant]
     Indication: INSOMNIA
     Dosage: 2 MG, AT NIGHT
     Route: 048
     Dates: start: 2006
  5. PANTOPRAZOLE [Concomitant]
     Active Substance: PANTOPRAZOLE
     Indication: ABDOMINAL DISCOMFORT
     Dosage: 10 MG, QD, 2 YEARS AGO
     Route: 048
  6. ASPIRIN. [Concomitant]
     Active Substance: ASPIRIN
     Indication: INFARCTION
     Dosage: 1 DF, EVERY 4 OR 5 DAYS, OVER 10 YEARS AGO
     Route: 048

REACTIONS (4)
  - Retinopathy [Not Recovered/Not Resolved]
  - Insomnia [Unknown]
  - Blood glucose decreased [Recovered/Resolved]
  - Hypertension [Not Recovered/Not Resolved]

NARRATIVE: CASE EVENT DATE: 2006
